FAERS Safety Report 9305687 (Version 3)
Quarter: 2013Q3

REPORT INFORMATION
  Report Type: Spontaneous
  Country: US (occurrence: US)
  Receive Date: 20130523
  Receipt Date: 20130806
  Transmission Date: 20140515
  Serious: Yes (Hospitalization)
  Sender: FDA-Public Use
  Company Number: US-ELI_LILLY_AND_COMPANY-US201305004264

PATIENT
  Age: 61 Year
  Sex: Female
  Weight: 53.97 kg

DRUGS (3)
  1. FORTEO [Suspect]
     Indication: OSTEOPOROSIS
     Dosage: UNK, QD
  2. FORTEO [Suspect]
     Dosage: UNK, QD
     Dates: start: 201301
  3. HYDROCODONE [Concomitant]
     Indication: PAIN
     Dosage: UNK

REACTIONS (1)
  - Nephrolithiasis [Recovered/Resolved]
